FAERS Safety Report 11670910 (Version 5)
Quarter: 2016Q2

REPORT INFORMATION
  Report Type: Report from Study
  Country: CA (occurrence: CA)
  Receive Date: 20151028
  Receipt Date: 20160607
  Transmission Date: 20160815
  Serious: Yes (Hospitalization, Other)
  Sender: FDA-Public Use
  Company Number: CA-ROCHE-1623104

PATIENT
  Age: 72 Year
  Sex: Male

DRUGS (8)
  1. ESBRIET [Suspect]
     Active Substance: PIRFENIDONE
     Route: 048
     Dates: start: 20150815, end: 201512
  2. METOPROLOL. [Concomitant]
     Active Substance: METOPROLOL
     Route: 065
  3. CLOPIDOGREL [Concomitant]
     Active Substance: CLOPIDOGREL BISULFATE
     Route: 065
  4. HUMALOG [Concomitant]
     Active Substance: INSULIN LISPRO
     Dosage: 20 UNITS AC MEAL AS PER SLIDING SCALE
     Route: 065
  5. ESBRIET [Suspect]
     Active Substance: PIRFENIDONE
     Route: 048
     Dates: start: 20150808
  6. ESBRIET [Suspect]
     Active Substance: PIRFENIDONE
     Indication: IDIOPATHIC PULMONARY FIBROSIS
     Route: 048
     Dates: start: 20150801
  7. ROSUVASTATIN. [Concomitant]
     Active Substance: ROSUVASTATIN
     Route: 065
  8. TECTA [Concomitant]
     Active Substance: PANTOPRAZOLE MAGNESIUM
     Route: 065

REACTIONS (13)
  - Incoherent [Recovering/Resolving]
  - Constipation [Recovered/Resolved]
  - Hypotension [Not Recovered/Not Resolved]
  - Pulmonary function test decreased [Unknown]
  - Hypertension [Unknown]
  - Hypotension [Recovering/Resolving]
  - Oxygen saturation decreased [Unknown]
  - Dysarthria [Unknown]
  - Transient ischaemic attack [Unknown]
  - Seizure [Recovering/Resolving]
  - Pneumonia [Not Recovered/Not Resolved]
  - Epilepsy [Unknown]
  - Fatigue [Not Recovered/Not Resolved]

NARRATIVE: CASE EVENT DATE: 201508
